FAERS Safety Report 14255193 (Version 1)
Quarter: 2017Q4

REPORT INFORMATION
  Report Type: Spontaneous
  Country: US (occurrence: None)
  Receive Date: 20171205
  Receipt Date: 20171205
  Transmission Date: 20180321
  Serious: No
  Sender: FDA-Public Use
  Company Number: None

PATIENT
  Age: 81 Year

DRUGS (2)
  1. VELCADE [Suspect]
     Active Substance: BORTEZOMIB
     Dosage: 1.9 MG DAY 1,4,8 AND 11 IV
     Route: 042
     Dates: start: 20130318
  2. ZOLEDRONIC ACID 4MG/5ML SDV PAR STERILE [Suspect]
     Active Substance: ZOLEDRONIC ACID
     Indication: PLASMA CELL MYELOMA
     Route: 042
     Dates: start: 20140106

REACTIONS (1)
  - Disease progression [None]

NARRATIVE: CASE EVENT DATE: 20171205
